FAERS Safety Report 17908009 (Version 1)
Quarter: 2020Q2

REPORT INFORMATION
  Report Type: Spontaneous
  Country: US (occurrence: US)
  Receive Date: 20200617
  Receipt Date: 20200617
  Transmission Date: 20200714
  Serious: Yes (Death)
  Sender: FDA-Public Use
  Company Number: None

PATIENT
  Age: 48 Year
  Sex: Female

DRUGS (1)
  1. INVEGA SUSTENNA [Suspect]
     Active Substance: PALIPERIDONE PALMITATE
     Dosage: ?          OTHER FREQUENCY:EVERY 30 DAYS;?
     Route: 030
     Dates: start: 20190520, end: 20200604

REACTIONS (1)
  - Death [None]

NARRATIVE: CASE EVENT DATE: 20200616
